FAERS Safety Report 6318805-9 (Version None)
Quarter: 2009Q3

REPORT INFORMATION
  Report Type: 
  Country: None (occurrence: None)
  Receive Date: 20090821
  Receipt Date: 20090812
  Transmission Date: 20100115
  Serious: Yes (Life-Threatening, Hospitalization, Other)
  Sender: FDA-Public Use
  Company Number: GB-ABBOTT-09P-167-0584705-00

PATIENT
  Sex: Male

DRUGS (11)
  1. DEPAKOTE [Suspect]
     Indication: MANIA
     Route: 048
     Dates: start: 20040101, end: 20090624
  2. DEPAKOTE [Suspect]
     Indication: BIPOLAR DISORDER
  3. DEPAKOTE [Suspect]
     Indication: AGITATION
  4. DEPAKOTE [Suspect]
     Indication: ANXIETY
  5. LORAZEPAM [Suspect]
     Indication: MANIA
     Route: 048
     Dates: end: 20090625
  6. LORAZEPAM [Suspect]
     Indication: BIPOLAR DISORDER
     Route: 048
     Dates: start: 20090627
  7. LORAZEPAM [Suspect]
     Indication: AGITATION
  8. LORAZEPAM [Suspect]
     Indication: ANXIETY
  9. RISPERIDONE [Concomitant]
     Indication: AGITATION
     Route: 048
  10. RISPERIDONE [Concomitant]
     Indication: ANXIETY
  11. FLUOXETINE [Concomitant]
     Indication: DRUG USE FOR UNKNOWN INDICATION

REACTIONS (11)
  - AGITATION [None]
  - APNOEA [None]
  - CARDIAC ARREST [None]
  - CONFUSIONAL STATE [None]
  - DRUG WITHDRAWAL CONVULSIONS [None]
  - NEUTROPENIA [None]
  - NEUTROPHIL COUNT DECREASED [None]
  - RESTLESSNESS [None]
  - SEDATION [None]
  - STATUS EPILEPTICUS [None]
  - WITHDRAWAL SYNDROME [None]
